FAERS Safety Report 23260847 (Version 3)
Quarter: 2024Q1

REPORT INFORMATION
  Report Type: Spontaneous
  Country: AT (occurrence: AT)
  Receive Date: 20231205
  Receipt Date: 20240214
  Transmission Date: 20240409
  Serious: Yes (Hospitalization, Other)
  Sender: FDA-Public Use
  Company Number: AT-ROCHE-3137316

PATIENT
  Age: 37 Year
  Sex: Female

DRUGS (93)
  1. CAPECITABINE [Suspect]
     Active Substance: CAPECITABINE
     Indication: Breast cancer metastatic
     Dosage: DAILY DOSE: 2000 MILLIGRAM
     Route: 048
     Dates: start: 20210404, end: 20220114
  2. CAPECITABINE [Suspect]
     Active Substance: CAPECITABINE
     Indication: Breast cancer metastatic
     Dosage: DAY 1 - DAY 14, BID?DAILY DOSE: 3000 MILLIGRAM
     Route: 048
     Dates: start: 20210430, end: 20210930
  3. CAPECITABINE [Suspect]
     Active Substance: CAPECITABINE
     Indication: Breast cancer metastatic
     Dosage: FREQUENCY: OTHER
     Route: 048
     Dates: start: 20210430
  4. CAPECITABINE [Suspect]
     Active Substance: CAPECITABINE
     Indication: Breast cancer metastatic
     Dosage: DAY 1 - DAY 14, BID?DAILY DOSE: 2000 MILLIGRAM
     Route: 048
     Dates: start: 20210904, end: 20220114
  5. CAPECITABINE [Suspect]
     Active Substance: CAPECITABINE
     Indication: Breast cancer metastatic
     Dosage: 1000 MG (FREQUENCY NOT REPORTED)
     Route: 048
     Dates: start: 20210929
  6. CAPECITABINE [Suspect]
     Active Substance: CAPECITABINE
     Indication: Breast cancer metastatic
     Dosage: DAY 1 - DAY 14, BID?DAILY DOSE: 2000 MILLIGRAM
     Route: 048
     Dates: start: 20220204
  7. CAPECITABINE [Suspect]
     Active Substance: CAPECITABINE
     Indication: Breast cancer metastatic
     Dosage: 500 MG (FREQUENCY NOT REPORTED).
     Route: 048
     Dates: start: 20220930, end: 20221024
  8. KADCYLA [Suspect]
     Active Substance: ADO-TRASTUZUMAB EMTANSINE
     Indication: Breast cancer metastatic
     Dosage: EVERY 3 WEEKS
     Route: 042
     Dates: start: 20180205, end: 20190816
  9. HERCEPTIN [Suspect]
     Active Substance: TRASTUZUMAB
     Indication: Breast cancer metastatic
     Dosage: IV DRIP, EVERY 3 WEEKS, MOST RECENT DOSE PRIOR TO THE EVENT: 6/SEP/2019
     Route: 042
     Dates: start: 20161020, end: 20161020
  10. HERCEPTIN [Suspect]
     Active Substance: TRASTUZUMAB
     Indication: Breast cancer metastatic
     Dosage: IV DRIP, EVERY 3 WEEKS
     Route: 042
     Dates: start: 20170112, end: 20170112
  11. HERCEPTIN [Suspect]
     Active Substance: TRASTUZUMAB
     Indication: Breast cancer metastatic
     Dosage: 6 MG/KG, SINGLE 3 WEEKS
     Route: 042
     Dates: start: 20170202
  12. HERCEPTIN [Suspect]
     Active Substance: TRASTUZUMAB
     Indication: Breast cancer metastatic
     Dosage: IV DRIP, EVERY 3 WEEKS
     Route: 042
     Dates: start: 20170227, end: 20180108
  13. HERCEPTIN [Suspect]
     Active Substance: TRASTUZUMAB
     Indication: Breast cancer metastatic
     Dosage: IV DRIP, EVERY 3 WEEKS
     Route: 042
     Dates: start: 20190906
  14. HERCEPTIN [Suspect]
     Active Substance: TRASTUZUMAB
     Indication: Breast cancer metastatic
     Dosage: 6 MG/KG, SINGLE 3 WEEKS
     Route: 042
     Dates: start: 20210929, end: 20220930
  15. PERJETA [Suspect]
     Active Substance: PERTUZUMAB
     Indication: Breast cancer metastatic
     Dosage: ONCE IN EVERY 3 WEEKS
     Route: 042
     Dates: start: 20161020, end: 20161020
  16. PERJETA [Suspect]
     Active Substance: PERTUZUMAB
     Indication: Breast cancer metastatic
     Dosage: ONCE IN EVERY 3 WEEKS
     Route: 042
     Dates: start: 20170112, end: 20170112
  17. PERJETA [Suspect]
     Active Substance: PERTUZUMAB
     Indication: Breast cancer metastatic
     Dosage: 420 MG, SINGLE 3 WEEKS
     Route: 042
     Dates: start: 20170202
  18. PERJETA [Suspect]
     Active Substance: PERTUZUMAB
     Indication: Breast cancer metastatic
     Route: 042
     Dates: start: 20170227, end: 20180108
  19. PERJETA [Suspect]
     Active Substance: PERTUZUMAB
     Indication: Breast cancer metastatic
     Dosage: ONCE IN EVERY 3 WEEKS
     Route: 042
     Dates: start: 20190906, end: 20210409
  20. CYTOXAN [Suspect]
     Active Substance: CYCLOPHOSPHAMIDE
     Indication: Breast cancer metastatic
     Dosage: OTHER MOST RECENT DOSE PRIOR TO AE 05/OCT/2016
     Route: 042
     Dates: start: 20161005, end: 20161005
  21. TUCATINIB [Suspect]
     Active Substance: TUCATINIB
     Indication: Breast cancer metastatic
     Dosage: BID?DAILY DOSE: 600 MILLIGRAM
     Route: 048
     Dates: start: 20210430, end: 20221023
  22. TUCATINIB [Suspect]
     Active Substance: TUCATINIB
     Indication: Breast cancer metastatic
     Dosage: 300 MG, MULTIPLE 1 DAYS
     Route: 048
     Dates: start: 20210929
  23. TAXOTERE [Suspect]
     Active Substance: DOCETAXEL
     Indication: Breast cancer metastatic
     Dosage: ONCE IN EVERY 3 WEEKS
     Route: 042
     Dates: start: 20161020, end: 20161020
  24. TAXOTERE [Suspect]
     Active Substance: DOCETAXEL
     Indication: Breast cancer metastatic
     Dosage: ONCE IN EVERY 3 WEEKS
     Route: 042
     Dates: start: 20161111, end: 20161111
  25. TAXOTERE [Suspect]
     Active Substance: DOCETAXEL
     Indication: Breast cancer metastatic
     Dosage: ONCE IN EVERY 3 WEEKS
     Route: 042
     Dates: start: 20161201, end: 20161222
  26. TAXOTERE [Suspect]
     Active Substance: DOCETAXEL
     Indication: Breast cancer metastatic
     Dosage: ONCE IN EVERY 3 WEEKS
     Route: 042
     Dates: start: 20170112, end: 20170202
  27. ELLENCE [Suspect]
     Active Substance: EPIRUBICIN HYDROCHLORIDE
     Indication: Breast cancer metastatic
     Dosage: ONE CYCLE PER REGIMEN
     Route: 042
     Dates: start: 20161005, end: 20161005
  28. FAM-TRASTUZUMAB DERUXTECAN-NXKI [Suspect]
     Active Substance: FAM-TRASTUZUMAB DERUXTECAN-NXKI
     Dosage: X 5.4 MILLIGRAM/KG IN 3 WEEK
     Route: 042
     Dates: start: 20220924, end: 20221114
  29. FAM-TRASTUZUMAB DERUXTECAN-NXKI [Suspect]
     Active Substance: FAM-TRASTUZUMAB DERUXTECAN-NXKI
     Dosage: X 4.4 MILLIGRAM/KG IN 3 WEEK
     Route: 042
     Dates: start: 20221202, end: 20230714
  30. FAM-TRASTUZUMAB DERUXTECAN-NXKI [Suspect]
     Active Substance: FAM-TRASTUZUMAB DERUXTECAN-NXKI
     Dosage: X 4.4 MILLIGRAM/KG IN 3 WEEK
     Route: 042
     Dates: start: 20230811
  31. VITAMINS WITH MINERALS [Concomitant]
     Active Substance: MINERALS\VITAMINS
     Indication: Prophylaxis
     Dosage: 1 DF TWICE DAILY?DAILY DOSE: 2 DOSAGE FORM
     Route: 048
     Dates: start: 20161112
  32. Concor / BISOPROLOL FUMARATE [Concomitant]
     Indication: Prophylaxis
     Dosage: 2.5 MG TWICE DAILY
     Route: 048
     Dates: start: 20170227
  33. Xgeva / DENOSUMAB [Concomitant]
     Indication: Prophylaxis
     Dosage: 120 MILLIGRAM IN 1 MONTH
     Route: 058
     Dates: start: 20161201
  34. Sucralan / SUCRALFATE [Concomitant]
     Indication: Prophylaxis
     Dosage: 5 MILLILITRE IN 1 AS NECESSARY
     Route: 048
     Dates: start: 201612, end: 20161212
  35. Sucralan / SUCRALFATE [Concomitant]
     Indication: Prophylaxis
     Dates: start: 20161215
  36. SERTRALINE [Concomitant]
     Active Substance: SERTRALINE HYDROCHLORIDE
     Indication: Depression
     Route: 048
     Dates: start: 20171016
  37. SERTRALINE [Concomitant]
     Active Substance: SERTRALINE HYDROCHLORIDE
     Indication: Depression
     Route: 048
     Dates: start: 20230714
  38. Enterobene / LOPERAMIDE HYDROCHLORIDE [Concomitant]
     Indication: Diarrhoea
     Dosage: 2 MILLIGRAM AS NECESSARY
     Route: 048
     Dates: start: 20171127
  39. RAMIPRIL [Concomitant]
     Active Substance: RAMIPRIL
     Indication: Cardiovascular event prophylaxis
     Dosage: 2.5 MG TWICE DAILY
     Route: 048
     Dates: start: 20161112, end: 20161221
  40. RAMIPRIL [Concomitant]
     Active Substance: RAMIPRIL
     Indication: Cardiovascular event prophylaxis
     Route: 048
     Dates: start: 20161222, end: 20170226
  41. RAMIPRIL [Concomitant]
     Active Substance: RAMIPRIL
     Indication: Cardiovascular event prophylaxis
     Route: 048
     Dates: start: 20170227
  42. RAMIPRIL [Concomitant]
     Active Substance: RAMIPRIL
     Indication: Cardiovascular event prophylaxis
     Route: 048
     Dates: start: 20170227
  43. Ondansan / ONDANSETRON HYDROCHLORIDE [Concomitant]
     Indication: Nausea
     Route: 048
     Dates: start: 20181105
  44. Hydal / HYDROMORPHONE HYDROCHLORIDE [Concomitant]
     Indication: Pain prophylaxis
     Route: 048
     Dates: start: 201706
  45. Hydal / HYDROMORPHONE HYDROCHLORIDE [Concomitant]
     Indication: Pain prophylaxis
     Route: 048
     Dates: start: 20190816, end: 20210326
  46. Hydal / HYDROMORPHONE HYDROCHLORIDE [Concomitant]
     Indication: Pain prophylaxis
     Dates: start: 20210309
  47. Hydal / HYDROMORPHONE HYDROCHLORIDE [Concomitant]
     Indication: Pain prophylaxis
     Route: 048
     Dates: start: 20210326, end: 20210409
  48. Hydal / HYDROMORPHONE HYDROCHLORIDE [Concomitant]
     Indication: Pain prophylaxis
     Dosage: 4 MG TWICE DAILY?DAILY DOSE: 8 MILLIGRAM
     Route: 048
     Dates: start: 20210410
  49. Seractil / DEXIBUPROFEN [Concomitant]
     Indication: Pain prophylaxis
     Dosage: 400 MG TRICE DAILY?DAILY DOSE: 1200 MILLIGRAM
     Route: 048
     Dates: start: 20210312
  50. Levertiracetam [Concomitant]
     Indication: Epilepsy
     Dosage: 750 MG TWICE DAILY?DAILY DOSE: 1500 MILLIGRAM
     Route: 048
     Dates: start: 20220201
  51. Frisium / CLOBAZAM [Concomitant]
     Indication: Epilepsy
     Dosage: 5 TABLET
     Route: 048
     Dates: start: 20220201
  52. Tazonam / PIPERACILLIN SODIUM [Concomitant]
     Route: 042
     Dates: start: 20161208, end: 20161212
  53. Clavamox / Amoxicillin;Clavulanate potassium [Concomitant]
     Route: 048
     Dates: start: 20161212, end: 20161216
  54. Glandomed / CHLORHEXIDINE GLUCONATE [Concomitant]
     Dosage: AS NECESSARY
     Route: 061
     Dates: start: 20161208, end: 20161222
  55. Perfalgan / PARACETAMOL [Concomitant]
     Route: 042
     Dates: start: 20161208, end: 20161212
  56. ZarZio / FILGRASTIM [Concomitant]
     Route: 058
     Dates: start: 20161208, end: 20161211
  57. XARELTO [Concomitant]
     Active Substance: RIVAROXABAN
     Route: 048
     Dates: start: 20161026, end: 201612
  58. Pantoloc / PANTOPRAZOLE SODIUM SESQUIHYDRATE [Concomitant]
     Route: 042
     Dates: start: 20161010, end: 20161018
  59. Pantoloc / PANTOPRAZOLE SODIUM SESQUIHYDRATE [Concomitant]
     Route: 048
     Dates: start: 20161018, end: 20161030
  60. Pantoloc / PANTOPRAZOLE SODIUM SESQUIHYDRATE [Concomitant]
     Route: 048
     Dates: start: 20161031, end: 20161123
  61. Gladem / SERTRALINE HYDROCHLORIDE [Concomitant]
     Route: 048
     Dates: end: 201710
  62. Halcion / TRIAZOLAM [Concomitant]
     Indication: Sleep disorder
     Dosage: DAILY DOSE: 0.25 MILLIGRAM
     Route: 048
     Dates: start: 2016, end: 201610
  63. Haldol / HALOPERIDOL [Concomitant]
     Indication: Prophylaxis of nausea and vomiting
     Route: 048
     Dates: start: 201702
  64. Durogesic / FENTANYL [Concomitant]
     Indication: Pain prophylaxis
     Route: 062
     Dates: start: 201706
  65. Paspertin / METOCLOPRAMIDE HYDROCHLORIDE [Concomitant]
     Indication: Nausea
     Dosage: 3 AMPULE
     Route: 042
     Dates: start: 20161113
  66. Xanor / ALPRAZOLAM [Concomitant]
     Dosage: AS NECESSARY
     Route: 048
     Dates: start: 20161117
  67. Lasix / FUROSEMIDE [Concomitant]
     Indication: Prophylaxis
     Route: 042
     Dates: start: 20161112, end: 20161114
  68. Lasix / FUROSEMIDE [Concomitant]
     Indication: Prophylaxis
     Route: 048
     Dates: start: 20161114, end: 201611
  69. Ceolat / DIMETICONE [Concomitant]
     Indication: Prophylaxis of nausea and vomiting
     Route: 048
     Dates: start: 20161112, end: 201702
  70. KCL [Concomitant]
     Active Substance: POTASSIUM CHLORIDE
     Indication: Prophylaxis
     Route: 048
     Dates: start: 20161117, end: 201702
  71. MOVICOL [Concomitant]
     Active Substance: POLYETHYLENE GLYCOL 3350\POTASSIUM CHLORIDE\SODIUM BICARBONATE\SODIUM CHLORIDE
     Indication: Constipation prophylaxis
     Route: 048
     Dates: end: 201706
  72. Optifibre / CYAMOPSIS TETRAGONOLOBA GUM [Concomitant]
     Indication: Prophylaxis
     Route: 048
     Dates: start: 20161102, end: 2016
  73. Zofran / ONDANSETRON [Concomitant]
     Indication: Prophylaxis of nausea and vomiting
     Route: 048
     Dates: start: 20161123, end: 20170204
  74. Aranesp / DARBEPOETIN ALFA [Concomitant]
     Indication: Anaemia prophylaxis
     Route: 058
     Dates: start: 20161201, end: 201701
  75. Aranesp / DARBEPOETIN ALFA [Concomitant]
     Indication: Anaemia prophylaxis
     Route: 058
     Dates: start: 20161201, end: 201701
  76. Fortecortin / Dexamethasone [Concomitant]
     Indication: Prophylaxis
     Route: 048
     Dates: start: 20161202, end: 20161203
  77. Fortecortin / Dexamethasone [Concomitant]
     Indication: Prophylaxis
     Route: 048
     Dates: start: 20180117, end: 20180122
  78. Lonquex / LIPEGFILGRASTIM [Concomitant]
     Indication: Prophylaxis
     Route: 058
     Dates: start: 20170113, end: 20170203
  79. Imodium / LOPERAMIDE HYDROCHLORIDE [Concomitant]
     Indication: Diarrhoea
     Route: 048
     Dates: start: 20171106, end: 20171127
  80. METOCLOPRAMIDE [Concomitant]
     Active Substance: METOCLOPRAMIDE
     Indication: Prophylaxis of nausea and vomiting
     Route: 042
     Dates: start: 20180205, end: 20190816
  81. METOCLOPRAMIDE [Concomitant]
     Active Substance: METOCLOPRAMIDE
     Indication: Prophylaxis of nausea and vomiting
  82. DEXAMETHASONE [Concomitant]
     Active Substance: DEXAMETHASONE
     Indication: Headache
     Route: 048
     Dates: start: 20180817, end: 20180831
  83. DEXAMETHASONE [Concomitant]
     Active Substance: DEXAMETHASONE
     Indication: Headache
     Dates: start: 20221123, end: 20221215
  84. LAXAGOL [Concomitant]
     Dates: start: 20201120
  85. CONCOR COR / BISOPROLOL FUMARATE [Concomitant]
     Route: 048
     Dates: start: 20161117, end: 20170226
  86. APREPITANT [Concomitant]
     Active Substance: APREPITANT
     Dates: start: 20221123
  87. ESOMEPRAZOLE [Concomitant]
     Active Substance: ESOMEPRAZOLE
     Dates: start: 20221123
  88. MILNACIPRAN [Concomitant]
     Active Substance: MILNACIPRAN
     Dates: start: 20221123
  89. TRITTICO / TRAZODONE HYDROCHLORIDE [Concomitant]
     Dates: start: 20221129
  90. LEVOCETIRIZIN / LEVOCETIRIZINE DIHYDROCHLORIDE [Concomitant]
     Dates: start: 20220801
  91. Vimpat / LACOSAMIDE [Concomitant]
     Dates: start: 20230602
  92. Ratiograstim/filgrastim [Concomitant]
     Dates: start: 20230811, end: 20230924
  93. Spirono/spironolactone [Concomitant]
     Dates: start: 20230811

REACTIONS (6)
  - Thrombocytopenia [Recovering/Resolving]
  - Nausea [Recovered/Resolved]
  - White blood cell count decreased [Recovered/Resolved]
  - Hemianopia [Recovered/Resolved]
  - Skin fissures [Recovered/Resolved]
  - White blood cell count decreased [Not Recovered/Not Resolved]

NARRATIVE: CASE EVENT DATE: 20180522
